FAERS Safety Report 7607748-6 (Version None)
Quarter: 2011Q3

REPORT INFORMATION
  Report Type: 
  Country: None (occurrence: None)
  Receive Date: 20110713
  Receipt Date: 20110606
  Transmission Date: 20111222
  Serious: Yes (Other)
  Sender: FDA-Public Use
  Company Number: PHHY2011US58819

PATIENT
  Sex: Female
  Weight: 145.13 kg

DRUGS (9)
  1. ASPIRIN [Concomitant]
  2. CARBAMAZEPINE [Concomitant]
     Dosage: 200 MG, UNK
  3. HYDROCHLOROTHIAZIDE [Concomitant]
     Dosage: 25 MG, UNK
  4. IMIPRAMINE HYDROCHLORIDE [Concomitant]
     Dosage: 25 MG, UNK
  5. LECITHIN [Concomitant]
  6. METFORMIN HCL [Concomitant]
  7. GILENYA [Suspect]
     Dosage: 0.5 MG, UNK
     Dates: start: 20110602, end: 20110616
  8. LISINOPRIL [Concomitant]
     Dosage: 40 MG, UNK
  9. BACLOFEN [Concomitant]
     Dosage: 10 MG, UNK

REACTIONS (3)
  - MACULAR OEDEMA [None]
  - MACULAR CYST [None]
  - VISION BLURRED [None]
